FAERS Safety Report 7221731-4 (Version None)
Quarter: 2011Q1

REPORT INFORMATION
  Report Type: 
  Country: None (occurrence: None)
  Receive Date: 20110112
  Receipt Date: 20101229
  Transmission Date: 20110831
  Serious: No
  Sender: FDA-Public Use
  Company Number: US-B.I. PHARMACEUTICALS,INC./RIDGEFIELD-2011-BP-00407BP

PATIENT
  Sex: Male

DRUGS (8)
  1. MULTIVITAMIN [Concomitant]
     Indication: PROPHYLAXIS
  2. FISH OIL (LOVAZA) [Concomitant]
     Indication: PROPHYLAXIS
  3. PRILOSEC [Concomitant]
     Indication: GASTROOESOPHAGEAL REFLUX DISEASE
  4. BYSTOLIC [Concomitant]
     Indication: HYPERTENSION
  5. CREON [Concomitant]
     Indication: INFLAMMATION
  6. CRESTOR [Concomitant]
     Indication: BLOOD CHOLESTEROL INCREASED
  7. TRILIPIX [Concomitant]
     Indication: BLOOD CHOLESTEROL INCREASED
  8. PRADAXA [Suspect]
     Indication: ATRIAL FIBRILLATION
     Dosage: 300 MG
     Route: 048
     Dates: start: 20101101

REACTIONS (1)
  - LIMB DISCOMFORT [None]
